FAERS Safety Report 11767558 (Version 1)
Quarter: 2015Q4

REPORT INFORMATION
  Report Type: Spontaneous
  Country: TH (occurrence: TH)
  Receive Date: 20151123
  Receipt Date: 20151123
  Transmission Date: 20160304
  Serious: Yes (Other)
  Sender: FDA-Public Use
  Company Number: TH-VIIV HEALTHCARE LIMITED-TH2015GSK165758

PATIENT
  Sex: Female

DRUGS (8)
  1. CLARITHROMYCIN. [Concomitant]
     Active Substance: CLARITHROMYCIN
  2. LAMIVUDINE. [Suspect]
     Active Substance: LAMIVUDINE
     Indication: ACQUIRED IMMUNODEFICIENCY SYNDROME
  3. RIFAMPICIN [Concomitant]
     Active Substance: RIFAMPIN
  4. ISONIAZID. [Concomitant]
     Active Substance: ISONIAZID
  5. PYRAZINAMIDE. [Concomitant]
     Active Substance: PYRAZINAMIDE
  6. ZIDOVUDINE. [Suspect]
     Active Substance: ZIDOVUDINE
     Indication: ACQUIRED IMMUNODEFICIENCY SYNDROME
  7. NEVIRAPINE. [Suspect]
     Active Substance: NEVIRAPINE
     Indication: ACQUIRED IMMUNODEFICIENCY SYNDROME
  8. ETHAMBUTOL [Concomitant]
     Active Substance: ETHAMBUTOL HYDROCHLORIDE

REACTIONS (4)
  - Pancytopenia [Recovered/Resolved]
  - Hepatitis [Recovered/Resolved]
  - Abdominal lymphadenopathy [Unknown]
  - Dermatitis allergic [Unknown]
